FAERS Safety Report 13179009 (Version 6)
Quarter: 2018Q4

REPORT INFORMATION
  Report Type: Report from Study
  Country: IT (occurrence: IT)
  Receive Date: 20170202
  Receipt Date: 20181206
  Transmission Date: 20190204
  Serious: Yes (Other)
  Sender: FDA-Public Use
  Company Number: IT-ROCHE-1884526

PATIENT
  Age: 85 Year
  Sex: Male
  Weight: 89 kg

DRUGS (20)
  1. TOCILIZUMAB. [Suspect]
     Active Substance: TOCILIZUMAB
     Indication: TEMPORAL ARTERITIS
     Dosage: QUANTITY SUFFICIENT, MOST RECENT DOSE AT 162 MG ON 09/NOV/2016.
     Route: 058
     Dates: start: 20160219
  2. NORVASC [Concomitant]
     Active Substance: AMLODIPINE BESYLATE
     Route: 048
     Dates: start: 20160317
  3. TAMSULOSINA [Concomitant]
     Active Substance: TAMSULOSIN HYDROCHLORIDE
     Route: 048
  4. BISOPROLOLO [Concomitant]
     Active Substance: BISOPROLOL FUMARATE
     Route: 048
     Dates: start: 20140701
  5. AVODART [Concomitant]
     Active Substance: DUTASTERIDE
     Route: 048
  6. REAPTAN [Concomitant]
     Active Substance: AMLODIPINE BESYLATE\PERINDOPRIL ARGININE
     Dosage: 1 TABLET
     Route: 048
     Dates: start: 20141229
  7. PREDNISONE. [Concomitant]
     Active Substance: PREDNISONE
     Route: 048
     Dates: start: 20161015
  8. PRETERAX [Concomitant]
     Active Substance: INDAPAMIDE\PERINDOPRIL
     Dosage: 1 TABLET
     Route: 048
     Dates: start: 20160317
  9. PREDNISONE. [Suspect]
     Active Substance: PREDNISONE
     Indication: TEMPORAL ARTERITIS
     Route: 048
     Dates: start: 20140313
  10. PREDNISONE. [Suspect]
     Active Substance: PREDNISONE
     Indication: TEMPORAL ARTERITIS
     Dosage: MOST RECENT DOSE PRIOR TO SAE 1.25 MG ONCE A 3 DAYS.
     Route: 048
     Dates: start: 20140306
  11. CARDIOASPIRIN [Concomitant]
     Active Substance: ASPIRIN
     Dosage: 1 TABLET
     Route: 048
  12. TELMISARTAN. [Concomitant]
     Active Substance: TELMISARTAN
     Route: 048
     Dates: start: 20140911
  13. CARDURA [Concomitant]
     Active Substance: DOXAZOSIN MESYLATE
     Dosage: 1 TABLET
     Route: 048
     Dates: start: 20141107
  14. LANSOX [Concomitant]
     Active Substance: LANSOPRAZOLE
     Route: 048
  15. FOLINA (ITALY) [Concomitant]
     Route: 048
  16. TOCILIZUMAB. [Suspect]
     Active Substance: TOCILIZUMAB
     Indication: TEMPORAL ARTERITIS
     Route: 058
     Dates: start: 20140306
  17. AMLODIPINE [Concomitant]
     Active Substance: AMLODIPINE BESYLATE
     Route: 048
     Dates: start: 20140619
  18. IGROTON [Concomitant]
     Active Substance: CHLORTHALIDONE
     Route: 048
     Dates: start: 20150105
  19. PREDNISONE. [Concomitant]
     Active Substance: PREDNISONE
     Indication: TEMPORAL ARTERITIS
     Route: 048
     Dates: start: 20160304, end: 20161014
  20. PRITOR (TELMISARTAN) [Concomitant]
     Active Substance: TELMISARTAN
     Route: 048
     Dates: start: 20141006

REACTIONS (1)
  - Prostate cancer [Not Recovered/Not Resolved]

NARRATIVE: CASE EVENT DATE: 20161102
